FAERS Safety Report 9424851 (Version 2)
Quarter: 2013Q3

REPORT INFORMATION
  Report Type: Spontaneous
  Country: US (occurrence: US)
  Receive Date: 20130729
  Receipt Date: 20130806
  Transmission Date: 20140515
  Serious: No
  Sender: FDA-Public Use
  Company Number: US-PFIZER INC-2013217848

PATIENT
  Age: 60 Year
  Sex: Male
  Weight: 88 kg

DRUGS (7)
  1. LYRICA [Suspect]
     Indication: NEURALGIA
     Dosage: 75 MG, 2X/DAY
     Route: 048
     Dates: start: 2012
  2. LYRICA [Interacting]
     Indication: NERVE INJURY
     Dosage: 75 MG, 2X/DAY
     Route: 048
     Dates: start: 201208
  3. AMLODIPINE BESILATE [Interacting]
     Indication: HYPERTENSION
     Dosage: 10 MG, 1X/DAY
  4. OXYCODONE HYDROCHLORIDE [Interacting]
     Dosage: 10 MG, 1X/DAY
  5. CARVEDILOL [Interacting]
     Indication: HYPERTENSION
     Dosage: 12.5 MG, 1X/DAY
  6. LOSARTAN POTASSIUM W/HYDROCHLOROTHIAZIDE [Interacting]
     Indication: HYPERTENSION
     Dosage: (LOSARTAN100 MG)/ (HYDROCHLOROTHIAZIDE 25MG), 1X/DAY
  7. BUPROPION XL [Interacting]
     Dosage: 150 MG, 1X/DAY

REACTIONS (7)
  - Peripheral vascular disorder [Not Recovered/Not Resolved]
  - Peripheral coldness [Not Recovered/Not Resolved]
  - Hypoaesthesia [Not Recovered/Not Resolved]
  - Paraesthesia [Not Recovered/Not Resolved]
  - Drug effect incomplete [Unknown]
  - Drug interaction [Unknown]
  - Dyspnoea [Recovered/Resolved]
